FAERS Safety Report 7202616-6 (Version None)
Quarter: 2010Q4

REPORT INFORMATION
  Report Type: 
  Country: None (occurrence: None)
  Receive Date: 20101229
  Receipt Date: 20101222
  Transmission Date: 20110411
  Serious: Yes (Hospitalization)
  Sender: FDA-Public Use
  Company Number: US-JNJFOC-20101104654

PATIENT
  Sex: Male

DRUGS (15)
  1. PREZISTA [Suspect]
     Indication: HIV INFECTION
     Route: 048
  2. ETRAVIRINE [Concomitant]
     Route: 048
  3. RITONAVIR [Concomitant]
     Route: 048
  4. TRAZODONE [Concomitant]
     Route: 048
  5. CITALOPRAM [Concomitant]
     Route: 048
  6. IBUPROFEN [Concomitant]
     Route: 048
  7. SULFAMETHOXAZOLE AND TRIMETHOPRIM [Concomitant]
     Route: 048
  8. TENOFOVIR DISOPROXIL FUMARATE [Concomitant]
     Route: 048
  9. RISPERIDONE [Concomitant]
     Route: 048
  10. ALBUTEROL [Concomitant]
     Route: 055
  11. MILK OF MAGNESIA [Concomitant]
  12. GUAIFENESIN [Concomitant]
     Route: 048
  13. CHLORPHENIRAMINE [Concomitant]
     Route: 048
  14. MAGNESIUM HYDROXIDE W/SIMETHICONE [Concomitant]
     Route: 048
  15. ACETAMINOPHEN [Concomitant]
     Route: 048

REACTIONS (1)
  - SUICIDAL IDEATION [None]
